FAERS Safety Report 6559034-3 (Version None)
Quarter: 2010Q1

REPORT INFORMATION
  Report Type: 
  Country: None (occurrence: None)
  Receive Date: 20100129
  Receipt Date: 20100119
  Transmission Date: 20100710
  Serious: Yes (Other)
  Sender: FDA-Public Use
  Company Number: GB-ABBOTT-10P-167-0622555-00

PATIENT
  Age: 40 Year
  Sex: Female

DRUGS (2)
  1. RITONAVIR SOFT GELATIN CAPSULES [Suspect]
     Indication: HIV INFECTION
     Route: 048
     Dates: end: 20090930
  2. LEXIVA [Concomitant]
     Indication: HIV INFECTION
     Route: 048
     Dates: end: 20090930

REACTIONS (1)
  - VAGINAL HAEMORRHAGE [None]
